FAERS Safety Report 8002943-9 (Version None)
Quarter: 2011Q4

REPORT INFORMATION
  Report Type: 
  Country: None (occurrence: None)
  Receive Date: 20111222
  Receipt Date: 20110411
  Transmission Date: 20120403
  Serious: No
  Sender: FDA-Public Use
  Company Number: US-GLAXOSMITHKLINE-A0922472A

PATIENT
  Age: 62 Year
  Sex: Male

DRUGS (7)
  1. ALLOPURINOL [Concomitant]
  2. CARDURA [Suspect]
     Route: 048
  3. TEKTURNA [Concomitant]
  4. FISH OIL [Concomitant]
  5. ASPIRIN [Concomitant]
  6. AVODART [Suspect]
     Indication: PROSTATOMEGALY
     Dosage: .5MG PER DAY
     Route: 048
     Dates: start: 20100301
  7. JALYN [Suspect]
     Indication: PROSTATOMEGALY
     Route: 048

REACTIONS (2)
  - BLOOD PRESSURE INCREASED [None]
  - DRUG INEFFECTIVE [None]
